FAERS Safety Report 9408084 (Version 2)
Quarter: 2013Q3

REPORT INFORMATION
  Report Type: Spontaneous
  Country: US (occurrence: None)
  Receive Date: 20130716
  Receipt Date: 20130829
  Transmission Date: 20140515
  Serious: Yes (Hospitalization)
  Sender: FDA-Public Use
  Company Number: 149360

PATIENT
  Age: 59 Year
  Sex: Female
  Weight: 48 kg

DRUGS (1)
  1. LEUCOVORIN CALCIUM FOR INJ. 50MG - BEDFORD LABS, INC. [Suspect]
     Indication: COLORECTAL CANCER METASTATIC
     Dosage: 400MG/M2 INTRAVENOUS DAY 1 EVERY 14 DAYS
     Route: 042
     Dates: start: 20121009, end: 20130604

REACTIONS (2)
  - Urinary tract obstruction [None]
  - Renal failure acute [None]
